FAERS Safety Report 12071442 (Version 1)
Quarter: 2016Q1

REPORT INFORMATION
  Report Type: Not Available
  Country: US (occurrence: US)
  Receive Date: 20160211
  Receipt Date: 20160211
  Transmission Date: 20160526
  Serious: Yes (Other)
  Sender: FDA-Public Use
  Company Number: US-ANIPHARMA-2015-US-001135

PATIENT
  Age: 23 Year
  Sex: Female
  Weight: 63.5 kg

DRUGS (1)
  1. REGLAN [Suspect]
     Active Substance: METOCLOPRAMIDE HYDROCHLORIDE
     Dosage: TID
     Route: 048
     Dates: start: 201501, end: 20150225

REACTIONS (5)
  - Dystonia [Unknown]
  - Muscle twitching [Recovered/Resolved]
  - Palpitations [Recovered/Resolved]
  - Syncope [Recovered/Resolved]
  - Agitation [Recovered/Resolved]

NARRATIVE: CASE EVENT DATE: 20150223
